FAERS Safety Report 23274103 (Version 1)
Quarter: 2023Q4

REPORT INFORMATION
  Report Type: Report from Study
  Country: BR (occurrence: BR)
  Receive Date: 20231208
  Receipt Date: 20231208
  Transmission Date: 20240110
  Serious: Yes (Life-Threatening, Hospitalization, Other)
  Sender: FDA-Public Use
  Company Number: BR-CELLTRION INC.-2023BR023382

PATIENT

DRUGS (4)
  1. TRUXIMA [Suspect]
     Active Substance: RITUXIMAB-ABBS
     Indication: Microscopic polyangiitis
     Dosage: 2 AMPOULES EVERY 6 MONTHS
     Route: 042
     Dates: start: 20220504
  2. PREDNISONE [Concomitant]
     Active Substance: PREDNISONE
     Dosage: 1 PILL A DAY (START DATE: 10 YEARS AGO)
     Route: 048
  3. INSULIN NOS [Concomitant]
     Active Substance: INSULIN NOS
     Indication: Diabetes mellitus
     Dosage: 10 UI ONCE A DAY (START DATE: 2 YEARS AGO)
     Route: 048
  4. AMLODIPINE [Concomitant]
     Active Substance: AMLODIPINE BESYLATE
     Indication: Hypertension
     Dosage: 1 PILL A DAY (START DATE: 2 YEARS AGO)
     Route: 048

REACTIONS (5)
  - Oxygen saturation decreased [Not Recovered/Not Resolved]
  - Pneumonia [Not Recovered/Not Resolved]
  - Inflammation [Not Recovered/Not Resolved]
  - Pyrexia [Recovered/Resolved]
  - Intentional dose omission [Unknown]

NARRATIVE: CASE EVENT DATE: 20231121
